FAERS Safety Report 13754170 (Version 2)
Quarter: 2017Q3

REPORT INFORMATION
  Report Type: Spontaneous
  Country: US (occurrence: US)
  Receive Date: 20170714
  Receipt Date: 20170717
  Transmission Date: 20171127
  Serious: Yes (Other)
  Sender: FDA-Public Use
  Company Number: US-ASTRAZENECA-2017SE70798

PATIENT
  Age: 6 Year
  Sex: Male
  Weight: 40.8 kg

DRUGS (9)
  1. SEROQUEL [Suspect]
     Active Substance: QUETIAPINE FUMARATE
     Indication: IMPULSIVE BEHAVIOUR
     Dosage: UNKNOWN
     Route: 048
  2. CALCIUM [Concomitant]
     Active Substance: CALCIUM
     Indication: OSTEOPENIA
     Dosage: 500MG, TOOK 1 TWICE A DAY
  3. LAMICTAL [Suspect]
     Active Substance: LAMOTRIGINE
     Indication: AFFECTIVE DISORDER
     Route: 065
  4. CLONIDINE. [Concomitant]
     Active Substance: CLONIDINE
     Indication: IMPULSIVE BEHAVIOUR
  5. SEROQUEL [Suspect]
     Active Substance: QUETIAPINE FUMARATE
     Indication: IMPULSIVE BEHAVIOUR
     Dosage: 12.5MG UNKNOWN
     Route: 048
  6. FLINTSTONES MULTIVITAMIN [Concomitant]
     Indication: HYPOVITAMINOSIS
     Dosage: TOOK 1 ONCE A DAY
  7. LAMICTAL [Suspect]
     Active Substance: LAMOTRIGINE
     Indication: IMPULSIVE BEHAVIOUR
     Route: 065
  8. CLONIDINE. [Concomitant]
     Active Substance: CLONIDINE
     Indication: SLEEP DISORDER
  9. MELATONIN [Concomitant]
     Active Substance: MELATONIN
     Indication: SLEEP DISORDER

REACTIONS (17)
  - Stevens-Johnson syndrome [Recovered/Resolved]
  - Depression [Unknown]
  - Hallucination [Unknown]
  - Somnolence [Unknown]
  - Suicidal ideation [Unknown]
  - Attention deficit/hyperactivity disorder [Not Recovered/Not Resolved]
  - Tourette^s disorder [Unknown]
  - Affective disorder [Not Recovered/Not Resolved]
  - Sensory processing disorder [Not Recovered/Not Resolved]
  - Excessive eye blinking [Unknown]
  - Metabolic disorder [Unknown]
  - Loss of consciousness [Unknown]
  - Liver function test increased [Recovered/Resolved]
  - Dry eye [Unknown]
  - Liver injury [Unknown]
  - Hallucination, tactile [Unknown]
  - Autism spectrum disorder [Not Recovered/Not Resolved]
